FAERS Safety Report 4888342-7 (Version None)
Quarter: 2006Q1

REPORT INFORMATION
  Report Type: 
  Country: None (occurrence: None)
  Receive Date: 20060123
  Receipt Date: 20060120
  Transmission Date: 20060701
  Serious: Yes (Other)
  Sender: FDA-Public Use
  Company Number: NZ-GLAXOSMITHKLINE-B0407444A

PATIENT

DRUGS (1)
  1. AROPAX [Suspect]

REACTIONS (2)
  - INTRACRANIAL PRESSURE INCREASED [None]
  - VISUAL DISTURBANCE [None]
